FAERS Safety Report 18955724 (Version 1)
Quarter: 2021Q1

REPORT INFORMATION
  Report Type: Spontaneous
  Country: US (occurrence: US)
  Receive Date: 20210301
  Receipt Date: 20210301
  Transmission Date: 20210420
  Serious: Yes (Hospitalization, Other)
  Sender: FDA-Public Use
  Company Number: US-PFIZER INC-2021195737

PATIENT
  Age: 60 Year
  Sex: Female

DRUGS (1)
  1. XELJANZ XR [Suspect]
     Active Substance: TOFACITINIB CITRATE
     Dosage: 11 MG, 1X/DAY

REACTIONS (6)
  - Gastrointestinal inflammation [Unknown]
  - Haematuria [Unknown]
  - Haematochezia [Unknown]
  - Lipase increased [Unknown]
  - Abdominal pain [Unknown]
  - Gastrointestinal ulcer [Unknown]
